FAERS Safety Report 9992541 (Version 1)
Quarter: 2014Q1

REPORT INFORMATION
  Report Type: Spontaneous
  Country: US (occurrence: US)
  Receive Date: 20140310
  Receipt Date: 20140310
  Transmission Date: 20141002
  Serious: Yes (Other)
  Sender: FDA-Public Use
  Company Number: US-FRI-1000060441

PATIENT
  Age: 42 Year
  Sex: Female

DRUGS (1)
  1. SAPHRIS [Suspect]
     Route: 060

REACTIONS (2)
  - Loss of consciousness [Unknown]
  - Lip injury [Unknown]
